FAERS Safety Report 4608490-6 (Version None)
Quarter: 2005Q1

REPORT INFORMATION
  Report Type: 
  Country: None (occurrence: None)
  Receive Date: 20050315
  Receipt Date: 20050207
  Transmission Date: 20050727
  Serious: Yes (Hospitalization)
  Sender: FDA-Public Use
  Company Number: FR-GLAXOSMITHKLINE-B0370171A

PATIENT
  Age: 63 Year
  Sex: Male

DRUGS (6)
  1. AVANDIA [Suspect]
     Indication: DIABETES MELLITUS NON-INSULIN-DEPENDENT
     Dosage: 1TAB PER DAY
     Route: 048
     Dates: start: 20040501, end: 20050102
  2. NOVONORM [Concomitant]
     Route: 048
  3. GLUCOPHAGE [Concomitant]
     Route: 048
  4. ZESTRIL [Concomitant]
     Route: 048
  5. FENOFIBRATE [Concomitant]
     Route: 048
  6. ZOXAN [Concomitant]
     Route: 048

REACTIONS (5)
  - ABDOMINAL PAIN [None]
  - HYPERAMYLASAEMIA [None]
  - PANCREATIC NECROSIS [None]
  - PANCREATITIS HAEMORRHAGIC [None]
  - VOMITING [None]
